FAERS Safety Report 6809342-3 (Version None)
Quarter: 2010Q2

REPORT INFORMATION
  Report Type: 
  Country: None (occurrence: None)
  Receive Date: 20100630
  Receipt Date: 20100624
  Transmission Date: 20101027
  Serious: Yes (Death)
  Sender: FDA-Public Use
  Company Number: US-SANOFI-AVENTIS-2010SA033809

PATIENT
  Age: 28 Year
  Sex: Male

DRUGS (1)
  1. AMBIEN [Suspect]
     Route: 048

REACTIONS (7)
  - ANXIETY [None]
  - ARRHYTHMIA [None]
  - DEPRESSION [None]
  - DRUG INTERACTION [None]
  - DRUG TOXICITY [None]
  - LOSS OF CONSCIOUSNESS [None]
  - RESPIRATORY DEPRESSION [None]
